FAERS Safety Report 8778641 (Version 2)
Quarter: 2012Q4

REPORT INFORMATION
  Report Type: 
  Country: US (occurrence: US)
  Receive Date: 20120912
  Receipt Date: 20121002
  Transmission Date: 20130627
  Serious: No
  Sender: FDA-Public Use
  Company Number: US-PFIZER INC-2012224338

PATIENT
  Age: 75 Year
  Sex: Male
  Weight: 103 kg

DRUGS (4)
  1. CHANTIX [Suspect]
     Indication: SMOKING CESSATION THERAPY
     Dosage: 0.5 mg, daily
     Dates: start: 2012, end: 2012
  2. CHANTIX [Suspect]
     Dosage: 1 mg, 2x/day
     Dates: start: 2012
  3. DIGOXIN [Concomitant]
     Dosage: ^75 mg^ daily
  4. RAMIPRIL [Concomitant]
     Indication: ATRIAL FIBRILLATION
     Dosage: 2.5 mg, daily

REACTIONS (2)
  - Expired drug administered [Unknown]
  - Insomnia [Not Recovered/Not Resolved]
